FAERS Safety Report 6402580-3 (Version None)
Quarter: 2009Q4

REPORT INFORMATION
  Report Type: 
  Country: None (occurrence: None)
  Receive Date: 20091015
  Receipt Date: 20091009
  Transmission Date: 20100525
  Serious: Yes (Hospitalization)
  Sender: FDA-Public Use
  Company Number: US-MERCK-0910USA01425

PATIENT
  Age: 60 Year
  Sex: Male

DRUGS (2)
  1. PRINIVIL [Suspect]
     Route: 048
  2. NAPROXEN [Suspect]
     Route: 065

REACTIONS (3)
  - HYPERKALAEMIA [None]
  - PARALYSIS [None]
  - RENAL FAILURE ACUTE [None]
